FAERS Safety Report 8596947-5 (Version None)
Quarter: 2012Q3

REPORT INFORMATION
  Report Type: 
  Country: None (occurrence: None)
  Receive Date: 20120815
  Receipt Date: 20120803
  Transmission Date: 20120928
  Serious: Yes (Hospitalization)
  Sender: FDA-Public Use
  Company Number: CA-AMGEN-US222511

PATIENT
  Age: 68 Year
  Sex: Male

DRUGS (17)
  1. DIMENHYDRINATE [Concomitant]
     Dosage: 50 MG, PRN
  2. FOLIC ACID [Concomitant]
     Dosage: 5 MG, QD
     Route: 065
  3. ALLOPURINOL [Concomitant]
     Dosage: 100 MG, QD
     Route: 065
  4. DOCUSATE [Concomitant]
     Dosage: 200 MG, QD
     Route: 065
  5. ERYTHROPOIETIN HUMAN [Concomitant]
     Dosage: 8000 IU, 3 TIMES/WK
     Route: 042
  6. MORPHINE [Concomitant]
     Dosage: 2.5 MG, PRN
     Dates: start: 20070501
  7. CINACALCET HYDROCHLORIDE [Suspect]
     Indication: HYPERPARATHYROIDISM SECONDARY
     Dosage: UNK UNK, QD
     Route: 048
     Dates: start: 20070412, end: 20070530
  8. SINEMET [Concomitant]
     Dosage: UNK UNK, QD
     Route: 065
  9. ATENOLOL [Concomitant]
     Dosage: 25 MG, Q12H
     Route: 065
  10. SEVELAMER HCL [Concomitant]
     Dosage: 800 MG, TID
     Route: 065
  11. IRBESARTAN [Concomitant]
     Dosage: 150 MG, QD
     Route: 065
  12. FUROSEMIDE [Concomitant]
     Dosage: 40 MG, QD
     Route: 065
  13. TAMSULOSIN HCL [Concomitant]
     Dosage: .4 MG, QD
     Route: 065
  14. RABEPRAZOLE SODIUM [Concomitant]
     Dosage: 10 MG, QD
     Route: 065
  15. ISOSORBIDE MONONITRATE [Concomitant]
     Dosage: 60 MG, QD
     Route: 065
  16. LEVOTHYROXINE SODIUM [Concomitant]
     Dosage: .075 MG, QD
     Route: 065
  17. TPN [Concomitant]
     Dosage: 1.5 A?G, 3 TIMES/WK
     Route: 042

REACTIONS (1)
  - ENTERITIS [None]
